FAERS Safety Report 6901362-3 (Version None)
Quarter: 2010Q3

REPORT INFORMATION
  Report Type: 
  Country: None (occurrence: None)
  Receive Date: 20100803
  Receipt Date: 20080120
  Transmission Date: 20110219
  Serious: Yes (Other)
  Sender: FDA-Public Use
  Company Number: US-PFIZER INC-2008006360

PATIENT
  Sex: Female
  Weight: 81.818 kg

DRUGS (2)
  1. LYRICA [Suspect]
     Indication: FIBROMYALGIA
     Dates: start: 20071231
  2. AMITRIPTYLINE HYDROCHLORIDE [Concomitant]

REACTIONS (2)
  - DIZZINESS [None]
  - RASH [None]
